FAERS Safety Report 8727200 (Version 2)
Quarter: 2012Q4

REPORT INFORMATION
  Report Type: 
  Country: US (occurrence: US)
  Receive Date: 20120816
  Receipt Date: 20120927
  Transmission Date: 20130627
  Serious: Yes (Life-Threatening)
  Sender: FDA-Public Use
  Company Number: US-BAYER-2012-082387

PATIENT
  Age: 62 Year
  Sex: Female
  Weight: 76 kg

DRUGS (5)
  1. BAYER ADVANCED ASPIRIN EXTRA STRENGTH [Suspect]
     Indication: ARTHRITIS
     Dosage: 2 DF
     Route: 048
  2. HORMONES NOS [Concomitant]
  3. PROTONIX [Concomitant]
  4. AMITRIPTYLINE [Concomitant]
  5. MICARDIS [Concomitant]

REACTIONS (2)
  - Choking [Recovered/Resolved]
  - Oropharyngeal pain [Unknown]
